FAERS Safety Report 21526073 (Version 2)
Quarter: 2022Q4

REPORT INFORMATION
  Report Type: Spontaneous
  Country: FR (occurrence: FR)
  Receive Date: 20221031
  Receipt Date: 20221116
  Transmission Date: 20230113
  Serious: Yes (Death, Life-Threatening, Other)
  Sender: FDA-Public Use
  Company Number: FR-AMGEN-FRASP2022185883

PATIENT

DRUGS (9)
  1. BLINATUMOMAB [Suspect]
     Active Substance: BLINATUMOMAB
     Indication: Acute lymphocytic leukaemia
     Dosage: UNK
     Route: 065
  2. INOTUZUMAB OZOGAMICIN [Concomitant]
     Active Substance: INOTUZUMAB OZOGAMICIN
  3. CYTARABINE [Concomitant]
     Active Substance: CYTARABINE
  4. VINCRISTINE [Concomitant]
     Active Substance: VINCRISTINE
  5. VINDESINE [Concomitant]
     Active Substance: VINDESINE
  6. CLOFARABINE [Concomitant]
     Active Substance: CLOFARABINE
  7. CYCLOPHOSPHAMIDE [Concomitant]
     Active Substance: CYCLOPHOSPHAMIDE
  8. METHOTREXATE [Concomitant]
     Active Substance: METHOTREXATE
  9. PONATINIB [Concomitant]
     Active Substance: PONATINIB

REACTIONS (23)
  - Headache [Unknown]
  - Pyrexia [Unknown]
  - Thrombocytopenia [Unknown]
  - Anaemia [Unknown]
  - Infection [Fatal]
  - Tumour lysis syndrome [Unknown]
  - Neutropenia [Unknown]
  - Encephalopathy [Unknown]
  - Pancreatitis [Unknown]
  - Cytokine release syndrome [Unknown]
  - Acute graft versus host disease [Fatal]
  - Chronic graft versus host disease [Fatal]
  - Death [Fatal]
  - B precursor type acute leukaemia [Fatal]
  - Haemorrhage [Fatal]
  - Neuropathy peripheral [Unknown]
  - Adverse event [Unknown]
  - Fatigue [Unknown]
  - Hepatobiliary disease [Unknown]
  - Gastrointestinal disorder [Unknown]
  - Splenic infarction [Unknown]
  - Leukaemic infiltration extramedullary [Unknown]
  - Nervous system disorder [Unknown]
